FAERS Safety Report 13395620 (Version 1)
Quarter: 2017Q2

REPORT INFORMATION
  Report Type: Spontaneous
  Country: US (occurrence: US)
  Receive Date: 20170402
  Receipt Date: 20170402
  Transmission Date: 20170830
  Serious: Yes (Disabling)
  Sender: FDA-Public Use
  Company Number: None

PATIENT
  Age: 81 Year
  Sex: Female
  Weight: 63 kg

DRUGS (4)
  1. PROLIA [Suspect]
     Active Substance: DENOSUMAB
     Indication: OSTEOPOROSIS
     Route: 030
     Dates: start: 20161015
  2. CALCIUM WITH D3 [Concomitant]
  3. CHONDROITIN [Concomitant]
     Active Substance: CHONDROITIN
  4. MULTIVITAMIN [Concomitant]
     Active Substance: VITAMINS

REACTIONS (5)
  - Gait disturbance [None]
  - Musculoskeletal chest pain [None]
  - Pain in extremity [None]
  - Hypoaesthesia [None]
  - Exercise tolerance decreased [None]

NARRATIVE: CASE EVENT DATE: 20161030
